FAERS Safety Report 6601288-9 (Version None)
Quarter: 2010Q1

REPORT INFORMATION
  Report Type: 
  Country: None (occurrence: None)
  Receive Date: 20100225
  Receipt Date: 20090922
  Transmission Date: 20100710
  Serious: Yes (Other)
  Sender: FDA-Public Use
  Company Number: US-PERRIGO-09US003947

PATIENT
  Age: 63 Year
  Sex: Male
  Weight: 72.562 kg

DRUGS (4)
  1. DAYTIME PE ORIG LIQ 656 [Suspect]
     Indication: NASAL CONGESTION
     Dosage: 2 TABLESPOONS, BID
     Route: 048
     Dates: start: 20090920, end: 20090922
  2. VALIUM [Concomitant]
     Indication: ANXIETY
     Dosage: UNKNOWN
     Route: 048
  3. NEXIUM [Concomitant]
     Indication: GASTROOESOPHAGEAL REFLUX DISEASE
     Dosage: UNKNOWN
     Route: 048
  4. COUMADIN [Concomitant]
     Indication: ANTICOAGULANT THERAPY
     Dosage: UNKNOWN
     Route: 048

REACTIONS (1)
  - CONDITION AGGRAVATED [None]
